FAERS Safety Report 5029608-X (Version None)
Quarter: 2006Q2

REPORT INFORMATION
  Report Type: 
  Country: None (occurrence: None)
  Receive Date: 20060503
  Receipt Date: 20060322
  Transmission Date: 20061013
  Serious: No
  Sender: FDA-Public Use
  Company Number: FACT0600181

PATIENT
  Age: 80 Year
  Sex: Male
  Weight: 72.6 kg

DRUGS (5)
  1. FACTIVE [Suspect]
     Indication: RESPIRATORY TRACT INFECTION BACTERIAL
     Dosage: 320 MG, QD, ORAL
     Route: 048
     Dates: start: 20060308, end: 20060312
  2. HYZAAR [Concomitant]
  3. LIPITOR [Concomitant]
  4. ACCUPRIL [Concomitant]
  5. ATENOLOL [Concomitant]

REACTIONS (1)
  - DIARRHOEA [None]
